FAERS Safety Report 10557483 (Version 1)
Quarter: 2014Q4

REPORT INFORMATION
  Report Type: Spontaneous
  Country: US (occurrence: None)
  Receive Date: 20141030
  Receipt Date: 20141030
  Transmission Date: 20150529
  Serious: No
  Sender: FDA-Public Use
  Company Number: None

PATIENT
  Age: 58 Year
  Sex: Male
  Weight: 85.73 kg

DRUGS (1)
  1. FENTANYL 50 MCG SANDOZ [Suspect]
     Active Substance: FENTANYL
     Indication: PAIN
     Dosage: APPLY 1 PATCH?EVERY 3 DAYS?TRANSDERMAL
     Route: 062
     Dates: start: 20140725, end: 20140824

REACTIONS (1)
  - Product adhesion issue [None]

NARRATIVE: CASE EVENT DATE: 20140819
